FAERS Safety Report 10596305 (Version 3)
Quarter: 2015Q2

REPORT INFORMATION
  Report Type: Spontaneous
  Country: US (occurrence: US)
  Receive Date: 20141120
  Receipt Date: 20150413
  Transmission Date: 20150821
  Serious: Yes (Hospitalization, Other)
  Sender: FDA-Public Use
  Company Number: US-BAYER-2014-168361

PATIENT
  Age: 35 Year
  Sex: Female
  Weight: 63.49 kg

DRUGS (2)
  1. MIRENA [Suspect]
     Active Substance: LEVONORGESTREL
     Indication: CONTRACEPTION
     Dosage: 20 MCG/24HR, CONT
     Route: 015
     Dates: start: 20051101, end: 20071023
  2. PAROXETINE [Concomitant]
     Active Substance: PAROXETINE\PAROXETINE HYDROCHLORIDE
     Indication: ANXIETY
     Dosage: UNK
     Route: 048
     Dates: start: 2005

REACTIONS (12)
  - Device issue [None]
  - Device difficult to use [None]
  - Device breakage [None]
  - Device dislocation [None]
  - Injury [None]
  - Uterine perforation [None]
  - Genital haemorrhage [None]
  - Pain [None]
  - Emotional distress [None]
  - Complication of device removal [None]
  - Premenstrual syndrome [None]
  - Benign vaginal neoplasm [None]

NARRATIVE: CASE EVENT DATE: 200511
